FAERS Safety Report 24681452 (Version 1)
Quarter: 2024Q4

REPORT INFORMATION
  Report Type: Spontaneous
  Country: CA (occurrence: CA)
  Receive Date: 20241129
  Receipt Date: 20241129
  Transmission Date: 20250114
  Serious: Yes (Hospitalization)
  Sender: ROCHE
  Company Number: CA-ROCHE-10000143784

PATIENT
  Age: 38 Year
  Sex: Female
  Weight: 62 kg

DRUGS (27)
  1. RITUXIMAB [Suspect]
     Active Substance: RITUXIMAB
     Indication: Autoimmune lymphoproliferative syndrome
     Route: 065
  2. CYCLOPHOSPHAMIDE [Suspect]
     Active Substance: CYCLOPHOSPHAMIDE
     Indication: Autoimmune lymphoproliferative syndrome
     Route: 065
  3. VINCRISTINE SULFATE [Suspect]
     Active Substance: VINCRISTINE SULFATE
     Indication: Autoimmune lymphoproliferative syndrome
     Route: 065
  4. DOXORUBICIN HYDROCHLORIDE [Suspect]
     Active Substance: DOXORUBICIN HYDROCHLORIDE
     Indication: Autoimmune lymphoproliferative syndrome
     Route: 065
  5. FLUTICASONE PROPIONATE [Concomitant]
     Active Substance: FLUTICASONE PROPIONATE
  6. SALMETEROL [Concomitant]
     Active Substance: SALMETEROL
  7. HYDROMORPHONE [Concomitant]
     Active Substance: HYDROMORPHONE
  8. IRON SUCROSE (IV) [Concomitant]
     Route: 042
  9. LANSOPRAZOLE [Concomitant]
     Active Substance: LANSOPRAZOLE
  10. LORATADINE [Concomitant]
     Active Substance: LORATADINE
  11. LORAZEPAM [Concomitant]
     Active Substance: LORAZEPAM
  12. OLANZAPINE [Concomitant]
     Active Substance: OLANZAPINE
  13. POLYETHYLENE GLYCOL [Concomitant]
     Active Substance: POLYETHYLENE GLYCOL
  14. PREDNISONE [Concomitant]
     Active Substance: PREDNISONE
  15. PROCHLORPERAZINE [Concomitant]
     Active Substance: PROCHLORPERAZINE
  16. PROPRANOLOL [Concomitant]
     Active Substance: PROPRANOLOL HYDROCHLORIDE
  17. ALBUTEROL [Concomitant]
     Active Substance: ALBUTEROL
  18. SODIUM BICARBONATE [Concomitant]
     Active Substance: SODIUM BICARBONATE
  19. TACROLIMUS [Concomitant]
     Active Substance: TACROLIMUS
  20. VENLAFAXINE HYDROCHLORIDE [Concomitant]
     Active Substance: VENLAFAXINE HYDROCHLORIDE
  21. ZOLPIDEM [Concomitant]
     Active Substance: ZOLPIDEM TARTRATE
  22. ALLOPURINOL [Concomitant]
     Active Substance: ALLOPURINOL
  23. ARANESP [Concomitant]
     Active Substance: DARBEPOETIN ALFA
     Route: 042
  24. CALCIUM\VITAMIN D [Concomitant]
     Active Substance: CALCIUM\VITAMIN D
  25. ETHINYL ESTRADIOL [Concomitant]
     Active Substance: ETHINYL ESTRADIOL
  26. LEVONORGESTREL [Concomitant]
     Active Substance: LEVONORGESTREL
  27. FILGRASTIM [Concomitant]
     Active Substance: FILGRASTIM

REACTIONS (2)
  - Enterocolitis [Recovered/Resolved]
  - Febrile neutropenia [Recovered/Resolved]
